FAERS Safety Report 10027615 (Version 2)
Quarter: 2014Q2

REPORT INFORMATION
  Report Type: Spontaneous
  Country: US (occurrence: US)
  Receive Date: 20140321
  Receipt Date: 20140624
  Transmission Date: 20141212
  Serious: Yes (Hospitalization)
  Sender: FDA-Public Use
  Company Number: US-PFIZER INC-2014079900

PATIENT
  Age: 63 Year
  Sex: Male

DRUGS (1)
  1. SUTENT [Suspect]
     Indication: RENAL CANCER
     Dosage: 37.5 MG (ONE CAPSULE OF 25 MG AND ONE OF 12.5MG), 1X/DAY
     Route: 048
     Dates: end: 2014

REACTIONS (1)
  - Cardiac failure congestive [Unknown]
